FAERS Safety Report 20961800 (Version 1)
Quarter: 2022Q2

REPORT INFORMATION
  Report Type: Spontaneous
  Country: JP (occurrence: JP)
  Receive Date: 20220615
  Receipt Date: 20220615
  Transmission Date: 20220721
  Serious: Yes (Hospitalization, Other)
  Sender: FDA-Public Use
  Company Number: JP-BRISTOL-MYERS SQUIBB COMPANY-2022-058003

PATIENT
  Age: 73 Year
  Sex: Male
  Weight: 75 kg

DRUGS (12)
  1. VIDAZA [Suspect]
     Active Substance: AZACITIDINE
     Indication: Acute myeloid leukaemia
  2. VIDAZA [Suspect]
     Active Substance: AZACITIDINE
  3. VIDAZA [Suspect]
     Active Substance: AZACITIDINE
  4. VIDAZA [Suspect]
     Active Substance: AZACITIDINE
  5. VIDAZA [Suspect]
     Active Substance: AZACITIDINE
  6. VENETOCLAX [Concomitant]
     Active Substance: VENETOCLAX
     Indication: Acute myeloid leukaemia
  7. VENETOCLAX [Concomitant]
     Active Substance: VENETOCLAX
  8. VENETOCLAX [Concomitant]
     Active Substance: VENETOCLAX
  9. VENETOCLAX [Concomitant]
     Active Substance: VENETOCLAX
  10. VENETOCLAX [Concomitant]
     Active Substance: VENETOCLAX
  11. MICAFUNGIN SODIUM [Concomitant]
     Active Substance: MICAFUNGIN SODIUM
     Indication: Product used for unknown indication
  12. POSACONAZOLE [Concomitant]
     Active Substance: POSACONAZOLE
     Indication: Product used for unknown indication

REACTIONS (6)
  - Pneumonia [Unknown]
  - Stenotrophomonas infection [Unknown]
  - Device related infection [Unknown]
  - Blast cell count increased [Unknown]
  - Minimal residual disease [Unknown]
  - White blood cell count decreased [Unknown]
